FAERS Safety Report 7587048-3 (Version None)
Quarter: 2011Q3

REPORT INFORMATION
  Report Type: 
  Country: None (occurrence: None)
  Receive Date: 20110701
  Receipt Date: 20110621
  Transmission Date: 20111222
  Serious: Yes (Other)
  Sender: FDA-Public Use
  Company Number: PHHY2011US55134

PATIENT
  Sex: Female
  Weight: 28 kg

DRUGS (1)
  1. EXJADE [Suspect]
     Indication: SICKLE CELL ANAEMIA
     Dosage: 750 MG, DAILY
     Route: 048
     Dates: start: 20081128

REACTIONS (2)
  - CARDIAC ENZYMES INCREASED [None]
  - HEPATIC ENZYME INCREASED [None]
